FAERS Safety Report 19882105 (Version 1)
Quarter: 2021Q3

REPORT INFORMATION
  Report Type: Spontaneous
  Country: BR (occurrence: BR)
  Receive Date: 20210924
  Receipt Date: 20210924
  Transmission Date: 20211014
  Serious: Yes (Death, Other)
  Sender: FDA-Public Use
  Company Number: BR-CELGENEUS-BRA-20210904742

PATIENT
  Age: 80 Year
  Sex: Male
  Weight: 48 kg

DRUGS (1)
  1. VIDAZA [Suspect]
     Active Substance: AZACITIDINE
     Indication: MYELODYSPLASTIC SYNDROME
     Route: 058
     Dates: start: 20190122, end: 20210219

REACTIONS (13)
  - Weight decreased [Unknown]
  - Hepatic cancer [Fatal]
  - Metastases to lung [Fatal]
  - Acute myeloid leukaemia [Fatal]
  - Decreased appetite [Unknown]
  - Drug ineffective [Unknown]
  - Septic shock [Fatal]
  - Metastases to liver [Unknown]
  - Urinary tract infection [Unknown]
  - Pharyngitis [Unknown]
  - Asthenia [Unknown]
  - Constipation [Unknown]
  - Cytopenia [Fatal]

NARRATIVE: CASE EVENT DATE: 202012
